FAERS Safety Report 14960018 (Version 1)
Quarter: 2018Q2

REPORT INFORMATION
  Report Type: Spontaneous
  Country: FR (occurrence: FR)
  Receive Date: 20180531
  Receipt Date: 20180531
  Transmission Date: 20180711
  Serious: Yes (Hospitalization)
  Sender: FDA-Public Use
  Company Number: FR-009507513-1805FRA013345

PATIENT
  Age: 69 Year
  Sex: Female
  Weight: 77 kg

DRUGS (7)
  1. SIMVASTATIN. [Suspect]
     Active Substance: SIMVASTATIN
     Indication: SUICIDE ATTEMPT
     Route: 048
     Dates: start: 20180331, end: 20180331
  2. FEMARA [Concomitant]
     Active Substance: LETROZOLE
     Indication: SUICIDE ATTEMPT
     Route: 048
     Dates: start: 20180331, end: 20180331
  3. EUTHYROX [Concomitant]
     Active Substance: LEVOTHYROXINE SODIUM
     Indication: SUICIDE ATTEMPT
     Route: 048
     Dates: start: 20180331, end: 20180331
  4. TENORMINE [Suspect]
     Active Substance: ATENOLOL
     Indication: SUICIDE ATTEMPT
     Dosage: FORMULATION: SCORED FILM COATED TABLET
     Route: 048
     Dates: start: 20180331, end: 20180331
  5. UVEDOSE [Concomitant]
     Active Substance: CHOLECALCIFEROL
     Dosage: FORMULATION: ORAL SOLUTION AMPOULE
  6. IRBESARTAN. [Suspect]
     Active Substance: IRBESARTAN
     Indication: SUICIDE ATTEMPT
     Route: 048
     Dates: start: 20180331, end: 20180331
  7. STILNOX [Suspect]
     Active Substance: ZOLPIDEM TARTRATE
     Indication: SUICIDE ATTEMPT
     Dosage: FORMULATION: SCORED FILM COATED TABLET
     Route: 048
     Dates: start: 20180331, end: 20180331

REACTIONS (3)
  - Renal failure [Recovered/Resolved]
  - Hypotension [Recovered/Resolved]
  - Sinus bradycardia [Recovered/Resolved]

NARRATIVE: CASE EVENT DATE: 20180403
